FAERS Safety Report 4965506-5 (Version None)
Quarter: 2006Q1

REPORT INFORMATION
  Report Type: 
  Country: None (occurrence: None)
  Receive Date: 20060201
  Receipt Date: 20051207
  Transmission Date: 20060701
  Serious: No
  Sender: FDA-Public Use
  Company Number: 2005PV005552

PATIENT
  Age: 62 Year
  Sex: Female

DRUGS (9)
  1. BYETTA [Suspect]
     Indication: DIABETES MELLITUS NON-INSULIN-DEPENDENT
     Dosage: SEE  IMAGE
     Route: 058
     Dates: start: 20050831, end: 20050928
  2. BYETTA [Suspect]
     Indication: DIABETES MELLITUS NON-INSULIN-DEPENDENT
     Dosage: SEE  IMAGE
     Route: 058
     Dates: start: 20050928, end: 20051012
  3. BYETTA [Suspect]
     Indication: DIABETES MELLITUS NON-INSULIN-DEPENDENT
     Dosage: SEE  IMAGE
     Route: 058
     Dates: start: 20051012
  4. PROCRIT [Concomitant]
  5. AVANDIA [Concomitant]
  6. AMARYL [Concomitant]
  7. GLUCOPHAGE ^BRISTOL-MYERS SQUIB^ [Concomitant]
  8. GLIPIZIDE [Concomitant]
  9. TRICOR [Concomitant]

REACTIONS (5)
  - CHILLS [None]
  - FATIGUE [None]
  - FEELING COLD [None]
  - NAUSEA [None]
  - VOMITING [None]
